FAERS Safety Report 12305716 (Version 1)
Quarter: 2016Q2

REPORT INFORMATION
  Report Type: Spontaneous
  Country: AU (occurrence: AU)
  Receive Date: 20160426
  Receipt Date: 20160426
  Transmission Date: 20160815
  Serious: Yes (Other)
  Sender: FDA-Public Use
  Company Number: AU-CORDEN PHARMA LATINA S.P.A.-AU-2016COR000122

PATIENT
  Age: 21 Year
  Sex: Female

DRUGS (4)
  1. ETOPOSIDE. [Suspect]
     Active Substance: ETOPOSIDE
     Indication: OVARIAN GERM CELL TERATOMA
     Dosage: 100 MG/M2 PER DAY FOR 5 DAYS
  2. ETOPOSIDE. [Suspect]
     Active Substance: ETOPOSIDE
     Dosage: UNK
  3. CISPLATIN. [Suspect]
     Active Substance: CISPLATIN
     Dosage: UNK
  4. CISPLATIN. [Suspect]
     Active Substance: CISPLATIN
     Indication: OVARIAN CANCER
     Dosage: 20 MG/M2 PER DAY FOR 5 DAYS

REACTIONS (2)
  - Ovarian germ cell teratoma [Recovered/Resolved]
  - Alpha 1 foetoprotein increased [Recovered/Resolved]
